FAERS Safety Report 6196886-3 (Version None)
Quarter: 2009Q2

REPORT INFORMATION
  Report Type: 
  Country: None (occurrence: None)
  Receive Date: 20090520
  Receipt Date: 20090508
  Transmission Date: 20091009
  Serious: Yes (Other)
  Sender: FDA-Public Use
  Company Number: BR-AVENTIS-200915034GDDC

PATIENT
  Age: 59 Year
  Sex: Male
  Weight: 80 kg

DRUGS (5)
  1. LANTUS [Suspect]
     Route: 058
  2. LANTUS [Suspect]
     Route: 058
  3. LANTUS [Suspect]
     Route: 058
  4. OPTIPEN (INSULIN PUMP) [Suspect]
     Dates: start: 20010101
  5. PURAN T4 [Concomitant]
     Indication: HYPOTHYROIDISM
     Dosage: DOSE QUANTITY: 1
     Route: 048

REACTIONS (4)
  - HYPERGLYCAEMIA [None]
  - HYPOGLYCAEMIA [None]
  - METASTASES TO LIVER [None]
  - PANCREATIC CARCINOMA [None]
